FAERS Safety Report 21826023 (Version 1)
Quarter: 2023Q1

REPORT INFORMATION
  Report Type: Report from Study
  Country: KW (occurrence: KW)
  Receive Date: 20230106
  Receipt Date: 20230106
  Transmission Date: 20230418
  Serious: Yes (Hospitalization)
  Sender: FDA-Public Use
  Company Number: KW-JNJFOC-20221261540

PATIENT
  Age: 38 Year
  Sex: Male

DRUGS (1)
  1. IMBRUVICA [Suspect]
     Active Substance: IBRUTINIB
     Indication: Mantle cell lymphoma
     Route: 048
     Dates: start: 202204, end: 20221228

REACTIONS (1)
  - Therapy change [Not Recovered/Not Resolved]

NARRATIVE: CASE EVENT DATE: 20221228
